FAERS Safety Report 4998538-1 (Version None)
Quarter: 2006Q2

REPORT INFORMATION
  Report Type: 
  Country: None (occurrence: None)
  Receive Date: 20060508
  Receipt Date: 20060426
  Transmission Date: 20061013
  Serious: Yes (Other)
  Sender: FDA-Public Use
  Company Number: GBWYE579826APR06

PATIENT
  Age: 34 Year
  Sex: Female

DRUGS (1)
  1. EFFEXOR [Suspect]
     Indication: DEPRESSION
     Dosage: 75 MG 2X PER 1 DAY ORAL
     Route: 048
     Dates: start: 20041001, end: 20050815

REACTIONS (33)
  - ABNORMAL DREAMS [None]
  - AGITATION [None]
  - ANGER [None]
  - ANOREXIA [None]
  - ANXIETY [None]
  - APATHY [None]
  - ASTHENIA [None]
  - BURNING SENSATION [None]
  - DECREASED INTEREST [None]
  - DEPRESSION [None]
  - DISORIENTATION [None]
  - DIZZINESS [None]
  - FATIGUE [None]
  - FLATULENCE [None]
  - HEADACHE [None]
  - HYPERSENSITIVITY [None]
  - HYPOGLYCAEMIA [None]
  - INSOMNIA [None]
  - MANIA [None]
  - MOOD ALTERED [None]
  - MUSCLE DISORDER [None]
  - MUSCLE TWITCHING [None]
  - NERVOUSNESS [None]
  - NIGHTMARE [None]
  - PANIC ATTACK [None]
  - PARANOIA [None]
  - PERSONALITY CHANGE [None]
  - RESTLESSNESS [None]
  - SOMNOLENCE [None]
  - THINKING ABNORMAL [None]
  - TINNITUS [None]
  - TREMOR [None]
  - URINE ODOUR ABNORMAL [None]
